FAERS Safety Report 9125533 (Version 1)
Quarter: 2013Q1

REPORT INFORMATION
  Report Type: Spontaneous
  Country: GB (occurrence: GB)
  Receive Date: 20130227
  Receipt Date: 20130227
  Transmission Date: 20140127
  Serious: Yes (Other)
  Sender: FDA-Public Use
  Company Number: GB-BRISTOL-MYERS SQUIBB COMPANY-17406794

PATIENT
  Age: 74 Year
  Sex: Female
  Weight: 75 kg

DRUGS (7)
  1. ELIQUIS [Suspect]
     Indication: THROMBOSIS PROPHYLAXIS
     Route: 048
     Dates: start: 20130131, end: 20130207
  2. ASASANTIN RETARD [Concomitant]
  3. RANITIDINE [Concomitant]
  4. CHLORDIAZEPOXIDE [Concomitant]
  5. ATENOLOL [Concomitant]
  6. ATORVASTATIN [Concomitant]
  7. FUROSEMIDE [Concomitant]

REACTIONS (1)
  - Deep vein thrombosis [Unknown]
